FAERS Safety Report 24221108 (Version 1)
Quarter: 2024Q3

REPORT INFORMATION
  Report Type: Spontaneous
  Country: CN (occurrence: CN)
  Receive Date: 20240819
  Receipt Date: 20240819
  Transmission Date: 20241016
  Serious: Yes (Hospitalization, Other)
  Sender: ABBVIE
  Company Number: CN-ABBVIE-5878788

PATIENT
  Age: 33 Year
  Sex: Female

DRUGS (8)
  1. BOTOX [Suspect]
     Active Substance: ONABOTULINUMTOXINA
     Indication: Skin wrinkling
     Dosage: TIME INTERVAL: AS NECESSARY: 12 UNITS
     Route: 065
     Dates: start: 20240707, end: 20240707
  2. BOTOX [Suspect]
     Active Substance: ONABOTULINUMTOXINA
     Indication: Skin wrinkling
     Dosage: TIME INTERVAL: AS NECESSARY: 12 UNITS
     Route: 065
     Dates: start: 20240225, end: 20240225
  3. BOTOX [Suspect]
     Active Substance: ONABOTULINUMTOXINA
     Indication: Skin wrinkling
     Dosage: TIME INTERVAL: AS NECESSARY: 24 UNITS
     Route: 065
     Dates: start: 20240707, end: 20240707
  4. BOTOX [Suspect]
     Active Substance: ONABOTULINUMTOXINA
     Indication: Skin wrinkling
     Dosage: TIME INTERVAL: AS NECESSARY: 52 UNITS
     Route: 065
     Dates: start: 20240707, end: 20240707
  5. BOTOX [Suspect]
     Active Substance: ONABOTULINUMTOXINA
     Indication: Skin wrinkling
     Dosage: TIME INTERVAL: AS NECESSARY: 24 UNITS
     Route: 065
     Dates: start: 20240225, end: 20240225
  6. BOTOX [Suspect]
     Active Substance: ONABOTULINUMTOXINA
     Indication: Skin wrinkling
     Dosage: TIME INTERVAL: AS NECESSARY: 100 UNITS
     Route: 065
     Dates: start: 20180606, end: 20180606
  7. LETYBO [Suspect]
     Active Substance: LETIBOTULINUMTOXINA-WLBG
     Indication: Face lift
     Dosage: 100 UNIT
     Route: 065
     Dates: start: 20240707, end: 20240707
  8. LETYBO [Suspect]
     Active Substance: LETIBOTULINUMTOXINA-WLBG
     Indication: Face lift
     Dosage: 60 UNIT
     Route: 065
     Dates: start: 20240225, end: 20240225

REACTIONS (5)
  - Respiratory failure [Recovered/Resolved]
  - Off label use [Unknown]
  - Botulism [Recovered/Resolved]
  - Respiratory muscle weakness [Recovered/Resolved]
  - Headache [Recovered/Resolved]

NARRATIVE: CASE EVENT DATE: 20240707
